FAERS Safety Report 7655741-X (Version None)
Quarter: 2011Q3

REPORT INFORMATION
  Report Type: 
  Country: None (occurrence: None)
  Receive Date: 20110804
  Receipt Date: 20110801
  Transmission Date: 20111222
  Serious: Yes (Death)
  Sender: FDA-Public Use
  Company Number: US-CELGENEUS-163-21880-11071445

PATIENT
  Sex: Male

DRUGS (14)
  1. REVLIMID [Suspect]
     Indication: MYELODYSPLASTIC SYNDROME
     Dosage: 10 MILLIGRAM
     Route: 048
     Dates: start: 20110217, end: 20110101
  2. FUROSEMIDE [Concomitant]
     Route: 065
  3. SPIRONOLACTONE [Concomitant]
     Route: 065
  4. ZOLPIDEM [Concomitant]
     Route: 065
  5. AMIODARONE HCL [Concomitant]
     Route: 065
  6. GABAPENTIN [Concomitant]
     Route: 065
  7. OXYCOD [Concomitant]
     Route: 065
  8. ASPIRIN [Concomitant]
     Dosage: 81 MILLIGRAM
     Route: 065
  9. LIPITOR [Concomitant]
     Route: 065
  10. METFORMIN HCL [Concomitant]
     Route: 065
  11. SPIRIVA [Concomitant]
     Route: 065
  12. GLYBURIDE [Concomitant]
     Route: 065
  13. LOPRESSOR [Concomitant]
     Route: 065
  14. ONGLYZA [Concomitant]
     Route: 065

REACTIONS (1)
  - SEPSIS [None]
